FAERS Safety Report 8485013-5 (Version None)
Quarter: 2012Q3

REPORT INFORMATION
  Report Type: 
  Country: None (occurrence: None)
  Receive Date: 20120703
  Receipt Date: 20120625
  Transmission Date: 20120928
  Serious: Yes (Hospitalization, Disabling, Other)
  Sender: FDA-Public Use
  Company Number: ES-US-EMD SERONO, INC.-7122677

PATIENT
  Sex: Male
  Weight: 37 kg

DRUGS (1)
  1. SAIZEN [Suspect]
     Indication: SMALL FOR DATES BABY
     Route: 058
     Dates: start: 20101209, end: 20120125

REACTIONS (1)
  - OSTEONECROSIS [None]
